FAERS Safety Report 7457268-7 (Version None)
Quarter: 2011Q2

REPORT INFORMATION
  Report Type: 
  Country: None (occurrence: None)
  Receive Date: 20110426
  Receipt Date: 20110411
  Transmission Date: 20111010
  Serious: Yes (Hospitalization)
  Sender: FDA-Public Use
  Company Number: 2011MA003702

PATIENT
  Age: 40 Year
  Sex: Male

DRUGS (1)
  1. PHENYTOIN [Suspect]
     Indication: CONVULSION
     Dosage: 400 MG;OD
     Dates: start: 20090601

REACTIONS (7)
  - PLATELET COUNT DECREASED [None]
  - LIVEDO RETICULARIS [None]
  - CEREBRAL INFARCTION [None]
  - RASH PRURITIC [None]
  - LUPUS-LIKE SYNDROME [None]
  - CONVULSION [None]
  - HAEMOGLOBIN DECREASED [None]
